FAERS Safety Report 8231293-0 (Version None)
Quarter: 2012Q1

REPORT INFORMATION
  Report Type: 
  Country: None (occurrence: None)
  Receive Date: 20120323
  Receipt Date: 20120319
  Transmission Date: 20120608
  Serious: Yes (Life-Threatening, Other)
  Sender: FDA-Public Use
  Company Number: GB-PFIZER INC-2012070518

PATIENT
  Age: 20 Month
  Sex: Female
  Weight: 8 kg

DRUGS (6)
  1. SPIRONOLACTONE [Concomitant]
     Dosage: 10 MG, 1X/DAY
  2. SILDENAFIL CITRATE [Suspect]
     Indication: PULMONARY HYPERTENSION
     Dosage: 12 MG, 4X/DAY
     Route: 048
  3. CAPTOPRIL [Concomitant]
     Dosage: 5 MG, 3X/DAY
  4. CHLOROTHIAZIDE [Concomitant]
     Dosage: 100 MG, 1X/DAY
  5. FUROSEMIDE [Concomitant]
     Dosage: 10 MG, 3X/DAY
  6. ASPIRIN [Concomitant]
     Dosage: 37.5 MG, 1X/DAY

REACTIONS (3)
  - HAEMOPTYSIS [None]
  - EPISTAXIS [None]
  - RECTAL HAEMORRHAGE [None]
